FAERS Safety Report 7522051-0 (Version None)
Quarter: 2011Q2

REPORT INFORMATION
  Report Type: 
  Country: None (occurrence: None)
  Receive Date: 20110603
  Receipt Date: 20110524
  Transmission Date: 20111010
  Serious: Yes (Other)
  Sender: FDA-Public Use
  Company Number: US-JNJFOC-20110510968

PATIENT
  Sex: Male

DRUGS (1)
  1. STELARA [Suspect]
     Indication: PSORIASIS
     Dosage: PATIENT HAS BEEN ON DRUG FOR 1.5 YEARS. DATES NOT PROVIDED
     Route: 058
     Dates: start: 20091112

REACTIONS (2)
  - FATIGUE [None]
  - HYPERSOMNIA [None]
